FAERS Safety Report 4687420-5 (Version None)
Quarter: 2005Q2

REPORT INFORMATION
  Report Type: 
  Country: None (occurrence: None)
  Receive Date: 20050609
  Receipt Date: 20050609
  Transmission Date: 20051028
  Serious: Yes (Other)
  Sender: FDA-Public Use
  Company Number: None

PATIENT
  Sex: Male
  Weight: 65.8 kg

DRUGS (6)
  1. ALLOPURINOL [Suspect]
     Indication: ACUTE LYMPHOCYTIC LEUKAEMIA
     Dosage: 300 MG PO QD ON DAYS 1-14
     Route: 048
     Dates: start: 20050509
  2. CYCLOPHOSPHAMIDE [Suspect]
     Indication: ACUTE LYMPHOCYTIC LEUKAEMIA
     Dosage: 1200 MG/M2 IV OVER 15-30 MIN ON DAY 1
     Route: 042
     Dates: start: 20050509
  3. DUNORUBICIN [Suspect]
     Indication: ACUTE LYMPHOCYTIC LEUKAEMIA
     Dosage: 80 MG/M2/DAYS X 3 DAYS IV ON DAYS 1, 2, 3.
     Route: 042
     Dates: start: 20050509
  4. VINCRISTINE [Suspect]
     Indication: ACUTE LYMPHOCYTIC LEUKAEMIA
     Dosage: 2 MG IVP ON DAYS 1, 8, 15, 22.
     Route: 042
     Dates: start: 20050509
  5. L-ASPARAGINASE [Suspect]
     Indication: ACUTE LYMPHOCYTIC LEUKAEMIA
     Dosage: 6000 U/M2 SC/IM ON DAYS 5, 8, 11, 15, 18, 22.
     Route: 058
     Dates: start: 20050509
  6. G-CSF [Suspect]
     Indication: ACUTE LYMPHOCYTIC LEUKAEMIA
     Dosage: 5 MCG/KG/DAY SC STARTING DAY 4 X 7 DAYS AND CONTINUING UNTIL ANC IS }5000 MCL PRN.
     Route: 058
     Dates: start: 20050509

REACTIONS (8)
  - BLOOD FIBRINOGEN DECREASED [None]
  - COORDINATION ABNORMAL [None]
  - DIALYSIS [None]
  - DIFFICULTY IN WALKING [None]
  - HYPERBILIRUBINAEMIA [None]
  - HYPOKALAEMIA [None]
  - RENAL FAILURE ACUTE [None]
  - TUMOUR LYSIS SYNDROME [None]
